FAERS Safety Report 10257556 (Version 1)
Quarter: 2014Q2

REPORT INFORMATION
  Report Type: Spontaneous
  Country: AU (occurrence: None)
  Receive Date: 20140620
  Receipt Date: 20140620
  Transmission Date: 20141212
  Serious: Yes (Other)
  Sender: FDA-Public Use
  Company Number: SYM-2014-22091

PATIENT
  Age: 37 Year
  Sex: Male

DRUGS (1)
  1. WELLBUTRIN [Suspect]
     Indication: DEPRESSION
     Route: 048
     Dates: start: 20140423, end: 20140512

REACTIONS (6)
  - Suicidal ideation [None]
  - Depression [None]
  - Chest discomfort [None]
  - Apathy [None]
  - Social avoidant behaviour [None]
  - Condition aggravated [None]
